FAERS Safety Report 25504774 (Version 1)
Quarter: 2025Q3

REPORT INFORMATION
  Report Type: Report from Study
  Country: US (occurrence: US)
  Receive Date: 20250702
  Receipt Date: 20250702
  Transmission Date: 20251020
  Serious: Yes (Other)
  Sender: MARINUS PHARMACEUTICALS
  Company Number: US-MARINUS PHARMACEUTICALS, INC.-MAR2025000144

PATIENT

DRUGS (3)
  1. GANAXOLONE [Suspect]
     Active Substance: GANAXOLONE
     Indication: Product used for unknown indication
     Route: 048
  2. GANAXOLONE [Suspect]
     Active Substance: GANAXOLONE
     Route: 048
  3. GANAXOLONE [Suspect]
     Active Substance: GANAXOLONE
     Route: 048

REACTIONS (2)
  - Seizure [Unknown]
  - Drug ineffective [Unknown]

NARRATIVE: CASE EVENT DATE: 20250101
